FAERS Safety Report 6807894-0 (Version None)
Quarter: 2010Q2

REPORT INFORMATION
  Report Type: 
  Country: None (occurrence: None)
  Receive Date: 20100629
  Receipt Date: 20090313
  Transmission Date: 20101027
  Serious: No
  Sender: FDA-Public Use
  Company Number: US-PFIZER INC-2008152009

PATIENT
  Sex: Male
  Weight: 108 kg

DRUGS (8)
  1. VIAGRA [Suspect]
     Indication: ERECTILE DYSFUNCTION
     Dosage: 100 MG, AS NEEDED
     Route: 048
     Dates: start: 20081028
  2. METFORMIN [Concomitant]
     Dosage: UNK
  3. AVAPRO [Concomitant]
     Dosage: UNK
  4. NORVASC [Concomitant]
     Dosage: UNK
  5. VITAMINS [Concomitant]
     Dosage: UNK
  6. ACETYLSALICYLIC ACID [Concomitant]
     Dosage: UNK
  7. ZOCOR [Concomitant]
     Dosage: UNK
  8. LOTENSIN [Concomitant]

REACTIONS (1)
  - DRUG INEFFECTIVE [None]
